FAERS Safety Report 7879034-0 (Version None)
Quarter: 2011Q4

REPORT INFORMATION
  Report Type: 
  Country: None (occurrence: None)
  Receive Date: 20111025
  Receipt Date: 20110804
  Transmission Date: 20120403
  Serious: Yes (Other)
  Sender: FDA-Public Use
  Company Number: 2011BH024728

PATIENT
  Age: 14 Month
  Sex: Male
  Weight: 11.36 kg

DRUGS (5)
  1. ADVATE [Suspect]
  2. ADVATE [Suspect]
     Indication: FACTOR VIII DEFICIENCY
     Dosage: 1000 UNITS;3X A WEEK, IV
     Route: 042
     Dates: start: 20081001
  3. ADVATE [Suspect]
     Indication: FACTOR VIII DEFICIENCY
     Dosage: 1000 UNITS;3X A WEEK, IV
     Route: 042
     Dates: start: 20080101, end: 20080101
  4. ADVATE [Suspect]
     Indication: FACTOR VIII DEFICIENCY
     Dosage: 1000 UNITS;3X A WEEK, IV
     Route: 042
     Dates: start: 20080204
  5. ADVATE [Suspect]

REACTIONS (4)
  - MOUTH HAEMORRHAGE [None]
  - HEAD INJURY [None]
  - FACTOR VIII INHIBITION [None]
  - HAEMORRHAGE [None]
